FAERS Safety Report 4604504-8 (Version None)
Quarter: 2005Q1

REPORT INFORMATION
  Report Type: 
  Country: None (occurrence: None)
  Receive Date: 20050310
  Receipt Date: 20050204
  Transmission Date: 20050727
  Serious: Yes (Hospitalization)
  Sender: FDA-Public Use
  Company Number: FR-MERCK-0502FRA00014

PATIENT
  Age: 45 Year
  Sex: Female

DRUGS (13)
  1. NOROXIN [Suspect]
     Route: 048
     Dates: start: 20050101
  2. OMEPRAZOLE [Suspect]
     Route: 048
     Dates: start: 20050106
  3. CLOPIDOGREL BISULFATE [Suspect]
     Route: 048
     Dates: start: 20050107
  4. PERINDOPRIL ERBUMINE [Suspect]
     Route: 048
     Dates: start: 20050103
  5. FUROSEMIDE [Suspect]
     Route: 048
     Dates: start: 20050103
  6. IOBITRIDOL [Suspect]
     Route: 042
     Dates: start: 20050107, end: 20050107
  7. DOBUTAMINE HYDROCHLORIDE [Concomitant]
     Route: 065
  8. LORAZEPAM [Concomitant]
     Route: 065
  9. POTASSIUM CHLORIDE [Concomitant]
     Route: 065
  10. MOLSIDOMINE [Concomitant]
     Route: 065
  11. TINZAPARIN SODIUM [Concomitant]
     Route: 065
  12. INSULIN, NEUTRAL [Concomitant]
     Route: 065
  13. ASPIRIN LYSINE [Concomitant]
     Route: 065

REACTIONS (1)
  - VASCULAR PURPURA [None]
